FAERS Safety Report 5672994-8 (Version None)
Quarter: 2008Q1

REPORT INFORMATION
  Report Type: 
  Country: None (occurrence: None)
  Receive Date: 20080319
  Receipt Date: 20080306
  Transmission Date: 20080703
  Serious: Yes (Hospitalization)
  Sender: FDA-Public Use
  Company Number: B0512427A

PATIENT
  Age: 84 Year
  Sex: Female

DRUGS (4)
  1. FLIXOTIDE [Suspect]
     Indication: DRUG USE FOR UNKNOWN INDICATION
     Dosage: 250MCG TWICE PER DAY
     Route: 055
     Dates: end: 20050501
  2. VENTOLIN [Suspect]
     Indication: DRUG USE FOR UNKNOWN INDICATION
     Dosage: 100MCG TWELVE TIMES PER DAY
     Dates: end: 20050501
  3. ATROVENT [Concomitant]
     Dosage: 20MG EIGHT TIMES PER DAY
     Route: 055
  4. FORADIL [Concomitant]
     Dosage: 12MCG FOUR TIMES PER DAY
     Dates: end: 20050501

REACTIONS (1)
  - CARDIAC FAILURE [None]
